FAERS Safety Report 6656293-3 (Version None)
Quarter: 2010Q1

REPORT INFORMATION
  Report Type: 
  Country: None (occurrence: None)
  Receive Date: 20100329
  Receipt Date: 20100322
  Transmission Date: 20100710
  Serious: Yes (Hospitalization)
  Sender: FDA-Public Use
  Company Number: US-BAYER-201017295NA

PATIENT
  Sex: Female

DRUGS (1)
  1. ULTRAVIST 150 [Suspect]
     Dates: start: 20100322, end: 20100322

REACTIONS (4)
  - DYSPNOEA [None]
  - ERYTHEMA [None]
  - SWOLLEN TONGUE [None]
  - URTICARIA [None]
